FAERS Safety Report 7060822-8 (Version None)
Quarter: 2010Q4

REPORT INFORMATION
  Report Type: 
  Country: None (occurrence: None)
  Receive Date: 20101025
  Receipt Date: 20100831
  Transmission Date: 20110411
  Serious: No
  Sender: FDA-Public Use
  Company Number: US-BAUSCH-2010BL004883

PATIENT
  Age: 66 Year
  Sex: Female
  Weight: 77 kg

DRUGS (4)
  1. DICLOFENAC SODIUM [Suspect]
     Indication: UVEITIS
     Route: 047
     Dates: start: 20100829, end: 20100829
  2. DICLOFENAC SODIUM [Suspect]
     Indication: OFF LABEL USE
     Route: 047
     Dates: start: 20100829, end: 20100829
  3. DICLOFENAC SODIUM [Suspect]
     Route: 047
     Dates: start: 20100830, end: 20100830
  4. DICLOFENAC SODIUM [Suspect]
     Route: 047
     Dates: start: 20100830, end: 20100830

REACTIONS (5)
  - DRUG INEFFECTIVE FOR UNAPPROVED INDICATION [None]
  - ERYTHEMA OF EYELID [None]
  - EYE IRRITATION [None]
  - URTICARIA [None]
  - VISION BLURRED [None]
